FAERS Safety Report 8732940 (Version 2)
Quarter: 2012Q4

REPORT INFORMATION
  Report Type: Report from Study
  Country: FR (occurrence: FR)
  Receive Date: 20120820
  Receipt Date: 20121010
  Transmission Date: 20130627
  Serious: Yes (Other)
  Sender: FDA-Public Use
  Company Number: FR-ROCHE-1100070

PATIENT
  Age: 57 Year
  Sex: Male
  Weight: 65 kg

DRUGS (17)
  1. MABTHERA [Suspect]
     Indication: MANTLE CELL LYMPHOMA
     Dosage: last dose pror to SAE 31/May/2012
     Route: 041
     Dates: start: 20110804
  2. MABTHERA [Suspect]
     Route: 065
     Dates: start: 20110213, end: 20110420
  3. MABTHERA [Suspect]
     Route: 065
     Dates: start: 20110607, end: 20110607
  4. MABTHERA [Suspect]
     Dosage: 7 th cycle
     Route: 065
     Dates: start: 20110816
  5. ZELITREX [Concomitant]
     Route: 048
     Dates: start: 20110216
  6. LYRICA [Concomitant]
     Route: 048
     Dates: start: 20110929, end: 20120531
  7. LOXEN [Concomitant]
     Route: 048
     Dates: start: 20111201
  8. APROVEL [Concomitant]
     Dosage: 75 mg/d
     Route: 048
     Dates: start: 20110321
  9. BACTRIM FORTE [Concomitant]
     Route: 048
     Dates: start: 20110216
  10. BACTRIM FORTE [Concomitant]
     Route: 065
     Dates: start: 20110321
  11. CISPLATIN [Concomitant]
  12. CARMUSTINE [Concomitant]
  13. MELPHALAN [Concomitant]
  14. ETOPOSIDE [Concomitant]
  15. CYTARABIN [Concomitant]
     Route: 065
     Dates: start: 20110210, end: 20110420
  16. DEXAMETHASONE [Concomitant]
     Indication: RHEUMATOID ARTHRITIS
     Route: 042
     Dates: start: 20110804
  17. DEXAMETHASONE [Concomitant]
     Route: 065
     Dates: start: 20120816

REACTIONS (1)
  - Mixed liver injury [Recovering/Resolving]
